FAERS Safety Report 5570711-3 (Version None)
Quarter: 2007Q4

REPORT INFORMATION
  Report Type: 
  Country: None (occurrence: None)
  Receive Date: 20071221
  Receipt Date: 20071218
  Transmission Date: 20080405
  Serious: Yes (Hospitalization)
  Sender: FDA-Public Use
  Company Number: FR-AVENTIS-200714069FR

PATIENT
  Age: 57 Year
  Sex: Male

DRUGS (3)
  1. TAXOTERE [Suspect]
     Route: 042
     Dates: start: 20070806, end: 20071029
  2. CISPLATIN [Suspect]
     Route: 042
     Dates: start: 20070806, end: 20071029
  3. FLUOROURACIL [Suspect]
     Dates: start: 20070806, end: 20071029

REACTIONS (1)
  - RENAL FAILURE ACUTE [None]
